FAERS Safety Report 6040708-8 (Version None)
Quarter: 2009Q1

REPORT INFORMATION
  Report Type: 
  Country: None (occurrence: None)
  Receive Date: 20090116
  Receipt Date: 20080508
  Transmission Date: 20090719
  Serious: No
  Sender: FDA-Public Use
  Company Number: US-BRISTOL-MYERS SQUIBB COMPANY-14183362

PATIENT
  Age: 14 Year
  Sex: Male

DRUGS (2)
  1. ABILIFY [Suspect]
     Dosage: DOSE REDUCED TO 15 MG.
  2. ZOLOFT [Concomitant]

REACTIONS (3)
  - AGITATION [None]
  - AKATHISIA [None]
  - HYPOMANIA [None]
